FAERS Safety Report 5125016-1 (Version None)
Quarter: 2006Q4

REPORT INFORMATION
  Report Type: 
  Country: None (occurrence: None)
  Receive Date: 20061011
  Receipt Date: 20060921
  Transmission Date: 20070319
  Serious: Yes (Other)
  Sender: FDA-Public Use
  Company Number: PHBS2006ES14740

PATIENT

DRUGS (1)
  1. TRILEPTAL [Suspect]

REACTIONS (1)
  - MYASTHENIA GRAVIS [None]
